FAERS Safety Report 4907447-5 (Version None)
Quarter: 2006Q1

REPORT INFORMATION
  Report Type: 
  Country: None (occurrence: None)
  Receive Date: 20060208
  Receipt Date: 20060127
  Transmission Date: 20060701
  Serious: Yes (Hospitalization, Other)
  Sender: FDA-Public Use
  Company Number: HQWYE537527JAN06

PATIENT
  Age: 3 Year
  Sex: Male

DRUGS (3)
  1. CHILDREN'S ADVIL [Suspect]
     Indication: PHARYNGITIS
     Route: 048
     Dates: start: 20050201, end: 20050201
  2. CHILDREN'S ADVIL [Suspect]
     Indication: RHINITIS
     Route: 048
     Dates: start: 20050201, end: 20050201
  3. AUGMENTIN '125' [Concomitant]

REACTIONS (9)
  - ANOREXIA [None]
  - CARDIAC MURMUR [None]
  - ERYTHEMA [None]
  - EYE INJURY [None]
  - EYELID OEDEMA [None]
  - LYMPHADENOPATHY [None]
  - PERIORBITAL OEDEMA [None]
  - PYREXIA [None]
  - TYMPANIC MEMBRANE HYPERAEMIA [None]
